FAERS Safety Report 4667059-8 (Version None)
Quarter: 2005Q2

REPORT INFORMATION
  Report Type: 
  Country: None (occurrence: None)
  Receive Date: 20050520
  Receipt Date: 20041220
  Transmission Date: 20051028
  Serious: Yes (Other)
  Sender: FDA-Public Use
  Company Number: PHEH2004US13501

PATIENT
  Age: 53 Year
  Sex: Female

DRUGS (32)
  1. AREDIA [Suspect]
     Indication: BREAST CANCER METASTATIC
     Dosage: 90 MG, QMO
     Dates: start: 20000620, end: 20020329
  2. AREDIA [Suspect]
     Dosage: 90 MG, QMO
     Dates: start: 20020912, end: 20040415
  3. ZOMETA [Suspect]
     Indication: BREAST CANCER METASTATIC
     Dosage: 4 MG, QMO
     Route: 042
     Dates: start: 20020329, end: 20020912
  4. TAXOL [Concomitant]
     Dosage: 175 MG/M2, UNK
     Route: 017
  5. TAMOXIFEN [Concomitant]
     Dosage: 20 MG, QD
  6. ARIMIDEX [Concomitant]
     Dosage: 1 MG, QD
  7. FASLODEX [Concomitant]
     Dosage: 250 MG, QMO
     Route: 030
  8. VASOTEC [Concomitant]
     Dosage: 25 MG, UNK
  9. LASIX [Concomitant]
     Dosage: 40 MG, UNK
  10. POTASSIUM CHLORIDE [Concomitant]
     Dosage: 10 MEQ, UNK
  11. ASPIRIN [Concomitant]
     Dosage: 81 MG, UNK
  12. ZOLOFT [Concomitant]
     Dosage: 50 MG, UNK
  13. DEXAMETHASONE [Concomitant]
     Dosage: 20 MG, UNK
  14. OXYCONTIN [Concomitant]
     Dosage: 20 MG, UNK
  15. EPOGEN [Concomitant]
     Dosage: 20000 UNK, UNK
  16. LEVAQUIN [Concomitant]
     Dosage: 500 MG, UNK
  17. ARANESP [Concomitant]
     Dosage: 200MCG QWK
  18. NEUPOGEN [Concomitant]
     Dosage: 480 MCG
  19. CARBOPLATIN [Concomitant]
     Dosage: 204 MG, UNK
  20. ZOFRAN [Concomitant]
     Dosage: 8 MG, UNK
  21. XELODA [Concomitant]
     Dosage: 2000 MG, UNK
  22. ZOLOFT [Concomitant]
  23. PROTONIX [Concomitant]
  24. NASONEX [Concomitant]
     Dates: start: 20031106
  25. CLARINEX /USA/ [Concomitant]
  26. OXYIR [Concomitant]
  27. NAVELBINE [Concomitant]
     Dosage: 42 MG, UNK
  28. TAXOTERE [Concomitant]
     Dosage: 58 MG, UNK
  29. COMPAZINE [Concomitant]
  30. AUGMENTIN [Concomitant]
     Dosage: 875 MG, BID
  31. FLAGYL [Concomitant]
     Dosage: 500 MG, BID
  32. AROMASIN [Concomitant]
     Dosage: 25 MG, QD

REACTIONS (9)
  - BONE DISORDER [None]
  - GINGIVAL SWELLING [None]
  - IMPAIRED HEALING [None]
  - OSTEONECROSIS [None]
  - PERIODONTAL DISEASE [None]
  - SOFT TISSUE DISORDER [None]
  - TOOTH ABSCESS [None]
  - TOOTH EXTRACTION [None]
  - WOUND DEBRIDEMENT [None]
